FAERS Safety Report 6094591-5 (Version None)
Quarter: 2009Q1

REPORT INFORMATION
  Report Type: 
  Country: None (occurrence: None)
  Receive Date: 20090224
  Receipt Date: 20090212
  Transmission Date: 20090719
  Serious: Yes (Hospitalization)
  Sender: FDA-Public Use
  Company Number: 200913328GPV

PATIENT
  Age: 51 Year
  Sex: Male

DRUGS (8)
  1. FLUDARA [Suspect]
     Indication: CHRONIC LYMPHOCYTIC LEUKAEMIA
     Dosage: 77 MG, ORAL; 77 MG, ORAL
     Route: 048
     Dates: start: 20081125, end: 20081127
  2. FLUDARA [Suspect]
     Indication: CHRONIC LYMPHOCYTIC LEUKAEMIA
     Dosage: 77 MG, ORAL; 77 MG, ORAL
     Route: 048
     Dates: start: 20081223, end: 20081225
  3. CAMPATH [Suspect]
     Indication: CHRONIC LYMPHOCYTIC LEUKAEMIA
     Dosage: 30 MG SUBCUTANOUS; 30 MG SUBCUTANEOUS
     Route: 058
     Dates: start: 20081125, end: 20081127
  4. CAMPATH [Suspect]
     Indication: CHRONIC LYMPHOCYTIC LEUKAEMIA
     Dosage: 30 MG SUBCUTANOUS; 30 MG SUBCUTANEOUS
     Route: 058
     Dates: start: 20081223, end: 20081225
  5. CYCLOPHOSPHAMIDE [Suspect]
     Indication: CHRONIC LYMPHOCYTIC LEUKAEMIA
     Dosage: 460 MG ORAL; 460 MG ORAL
     Route: 048
     Dates: start: 20081125, end: 20081127
  6. CYCLOPHOSPHAMIDE [Suspect]
     Indication: CHRONIC LYMPHOCYTIC LEUKAEMIA
     Dosage: 460 MG ORAL; 460 MG ORAL
     Route: 048
     Dates: start: 20081223, end: 20081225
  7. BACTRIM (CO-TRIMOXOAZOLE [CO-TRIMOXAZOLE]) [Concomitant]
  8. ZOVIRAX (ACICLOVIR [ACUCLOVIR]) [Concomitant]

REACTIONS (3)
  - CYTOMEGALOVIRUS INFECTION [None]
  - FEBRILE NEUTROPENIA [None]
  - LYMPHOPENIA [None]
